FAERS Safety Report 5077501-9 (Version None)
Quarter: 2006Q3

REPORT INFORMATION
  Report Type: 
  Country: None (occurrence: None)
  Receive Date: 20060810
  Receipt Date: 20060317
  Transmission Date: 20061208
  Serious: No
  Sender: FDA-Public Use
  Company Number: US-GLAXOSMITHKLINE-A0598029A

PATIENT
  Age: 85 Year
  Sex: Female

DRUGS (7)
  1. PAXIL [Suspect]
     Indication: SENSATION OF PRESSURE
     Dosage: 20MG PER DAY
     Route: 048
  2. ATENOLOL [Concomitant]
  3. ARIMIDEX [Concomitant]
  4. XALATAN [Concomitant]
  5. VITAMIN [Concomitant]
  6. HYDROCHLOROTHIAZIDE [Concomitant]
  7. FOSAMAX [Concomitant]

REACTIONS (3)
  - ANOREXIA [None]
  - DYSGEUSIA [None]
  - HEADACHE [None]
